FAERS Safety Report 6928450-X (Version None)
Quarter: 2010Q3

REPORT INFORMATION
  Report Type: 
  Country: None (occurrence: None)
  Receive Date: 20100817
  Receipt Date: 20100803
  Transmission Date: 20110219
  Serious: Yes (Hospitalization, Other)
  Sender: FDA-Public Use
  Company Number: DE-ELI_LILLY_AND_COMPANY-DE201008000620

PATIENT
  Sex: Female
  Weight: 96 kg

DRUGS (12)
  1. PEMETREXED [Suspect]
     Indication: NON-SMALL CELL LUNG CANCER
     Dosage: 975 MG, OTHER
     Route: 042
     Dates: start: 20100507
  2. CISPLATIN [Suspect]
     Indication: NON-SMALL CELL LUNG CANCER
     Dosage: 146 MG, OTHER
     Route: 042
     Dates: start: 20100507
  3. RAMIPRIL [Concomitant]
     Indication: HYPERTENSION
     Dates: start: 19800101
  4. SIMVASTATIN [Concomitant]
     Indication: HYPERLIPIDAEMIA
     Dates: start: 19800101
  5. OMEPRAZOLE [Concomitant]
     Indication: THERAPEUTIC PROCEDURE
     Dates: start: 20100412
  6. BETA-ACETYLDIGOXIN [Concomitant]
     Indication: ARRHYTHMIA
     Dates: start: 19800101
  7. NEBIVOLOL [Concomitant]
     Indication: HYPERTENSION
  8. MEDROXYPROGESTERONE [Concomitant]
  9. APREPITANT [Concomitant]
  10. FUROSEMIDE [Concomitant]
  11. ENOXAPARIN SODIUM [Concomitant]
     Dates: start: 20100707
  12. OXAZEPAM [Concomitant]

REACTIONS (1)
  - HYPOMAGNESAEMIA [None]
